FAERS Safety Report 9041116 (Version 1)
Quarter: 2013Q1

REPORT INFORMATION
  Report Type: Spontaneous
  Country: US (occurrence: None)
  Receive Date: 20130114
  Receipt Date: 20130114
  Transmission Date: 20140127
  Serious: Yes (Other)
  Sender: FDA-Public Use
  Company Number: 001443484A

PATIENT
  Age: 14 Year
  Sex: Female

DRUGS (4)
  1. PROACTIV EXTRA STRENGTH CLEANSER [Suspect]
     Indication: ACNE
     Dosage: DERMAL
     Dates: start: 20120906, end: 20121106
  2. PROACTIV EXTRA STRENGTH REPAIRING TREATMENT [Suspect]
     Indication: ACNE
     Dosage: DERMAL
  3. PROACTIV EXTRA STRENGTH TONER [Suspect]
     Indication: ACNE
     Dosage: DERMAL
  4. PROACTIV REFINING MASK [Suspect]
     Indication: ACNE
     Dosage: DERMAL

REACTIONS (3)
  - Burning sensation [None]
  - Pruritus [None]
  - Swelling face [None]
